FAERS Safety Report 5284370-0 (Version None)
Quarter: 2007Q1

REPORT INFORMATION
  Report Type: 
  Country: None (occurrence: None)
  Receive Date: 20070327
  Receipt Date: 20070312
  Transmission Date: 20070707
  Serious: Yes (Hospitalization, Other)
  Sender: FDA-Public Use
  Company Number: S06-UKI-04238-01

PATIENT
  Age: 42 Year
  Sex: Female

DRUGS (4)
  1. CITALOPRAM HYDROBROMIDE [Suspect]
     Indication: BIPOLAR DISORDER
     Dosage: 40 MG QD; PO
     Route: 048
  2. QUETIAPINE FUMARATE [Suspect]
     Indication: BIPOLAR DISORDER
     Dosage: 800 MG; UNK
  3. QUETIAPINE FUMARATE [Suspect]
     Indication: BIPOLAR DISORDER
     Dosage: 1000 MG ONCE;PO
     Route: 048
  4. ALPRAZOLAM [Concomitant]

REACTIONS (4)
  - DRUG INTERACTION [None]
  - IMPAIRED DRIVING ABILITY [None]
  - OVERDOSE [None]
  - SEROTONIN SYNDROME [None]
